FAERS Safety Report 7290262-8 (Version None)
Quarter: 2011Q1

REPORT INFORMATION
  Report Type: 
  Country: None (occurrence: None)
  Receive Date: 20110214
  Receipt Date: 20110203
  Transmission Date: 20110831
  Serious: Yes (Other)
  Sender: FDA-Public Use
  Company Number: CA-ASTRAZENECA-2011SE06364

PATIENT
  Age: 71 Year
  Sex: Male

DRUGS (3)
  1. CRESTOR [Suspect]
     Indication: HYPERCHOLESTEROLAEMIA
     Route: 048
     Dates: start: 20090101
  2. HYZAAR [Concomitant]
     Indication: HYPERTENSION
     Route: 048
  3. APO AMLODIPINE [Concomitant]
     Indication: HYPERTENSION
     Route: 048

REACTIONS (5)
  - SYNCOPE [None]
  - LOSS OF CONSCIOUSNESS [None]
  - DIZZINESS [None]
  - URTICARIA [None]
  - PRURITUS [None]
